FAERS Safety Report 9387716 (Version 1)
Quarter: 2013Q3

REPORT INFORMATION
  Report Type: Spontaneous
  Country: FR (occurrence: None)
  Receive Date: 20130703
  Receipt Date: 20130703
  Transmission Date: 20140515
  Serious: Yes (Hospitalization)
  Sender: FDA-Public Use
  Company Number: ABR_00996_2013

PATIENT
  Age: 36 Year
  Sex: Female

DRUGS (1)
  1. ERYTHROMYCIN [Suspect]
     Indication: URETHRITIS UREAPLASMAL
     Route: 048
     Dates: start: 20130328, end: 20130414

REACTIONS (3)
  - Diarrhoea [None]
  - Hepatitis [None]
  - Liver injury [None]
